FAERS Safety Report 24967258 (Version 1)
Quarter: 2025Q1

REPORT INFORMATION
  Report Type: Report from Study
  Country: US (occurrence: US)
  Receive Date: 20250213
  Receipt Date: 20250213
  Transmission Date: 20250408
  Serious: Yes (Other)
  Sender: ALEXION PHARMACEUTICALS
  Company Number: US-ASTRAZENECA-202502USA006307US

PATIENT

DRUGS (1)
  1. STRENSIQ [Suspect]
     Active Substance: ASFOTASE ALFA
     Route: 065

REACTIONS (15)
  - Kidney fibrosis [Unknown]
  - Arteriosclerosis coronary artery [Unknown]
  - Weight increased [Unknown]
  - Blood pressure decreased [Unknown]
  - Calcinosis [Unknown]
  - Fibrocystic breast disease [Unknown]
  - Breast calcifications [Unknown]
  - Coronary artery disease [Unknown]
  - Computerised tomogram kidney abnormal [Unknown]
  - Blood glucose increased [Unknown]
  - Blood urea increased [Unknown]
  - Blood creatinine increased [Unknown]
  - Blood calcium increased [Unknown]
  - Glomerular filtration rate decreased [Unknown]
  - Vitamin B6 decreased [Unknown]
